FAERS Safety Report 16211124 (Version 4)
Quarter: 2019Q4

REPORT INFORMATION
  Report Type: Spontaneous
  Country: FR (occurrence: FR)
  Receive Date: 20190418
  Receipt Date: 20191011
  Transmission Date: 20200122
  Serious: Yes (Life-Threatening, Hospitalization, Other)
  Sender: FDA-Public Use
  Company Number: FR-AUROBINDO-AUR-APL-2019-020059

PATIENT
  Age: 61 Year
  Sex: Female

DRUGS (7)
  1. OMEPRAZOLE ABBOTT [Concomitant]
     Indication: PRODUCT USED FOR UNKNOWN INDICATION
     Dosage: UNK
     Route: 065
  2. ROSUVASTATIN FILM-COATED TABLET [Suspect]
     Active Substance: ROSUVASTATIN CALCIUM
     Indication: PRODUCT USED FOR UNKNOWN INDICATION
     Dosage: 5 MILLIGRAM, DAILY
     Route: 048
  3. ALPRAZOLAM. [Concomitant]
     Active Substance: ALPRAZOLAM
     Indication: PRODUCT USED FOR UNKNOWN INDICATION
     Dosage: UNK
     Route: 065
  4. METFORMINE [Concomitant]
     Active Substance: METFORMIN HYDROCHLORIDE
     Indication: TYPE 2 DIABETES MELLITUS
     Dosage: UNK
     Route: 065
  5. ROSUVASTATIN 5MG [Suspect]
     Active Substance: ROSUVASTATIN
     Dosage: 5 MILLIGRAM, ONCE A DAY,8 MONTHS EARLIER
     Route: 065
  6. FLUOXETINE [Concomitant]
     Active Substance: FLUOXETINE HYDROCHLORIDE
     Indication: PRODUCT USED FOR UNKNOWN INDICATION
     Dosage: UNK
     Route: 065
  7. SITAGLIPTIN [Concomitant]
     Active Substance: SITAGLIPTIN
     Indication: TYPE 2 DIABETES MELLITUS
     Dosage: UNK
     Route: 065

REACTIONS (11)
  - Blood creatine phosphokinase increased [Unknown]
  - Butterfly rash [Recovering/Resolving]
  - Rash [Recovered/Resolved]
  - Myopathy [Unknown]
  - Erythema [Recovered/Resolved]
  - Neutrophilic dermatosis [Unknown]
  - Cutaneous lupus erythematosus [Recovering/Resolving]
  - Immune-mediated myositis [Recovered/Resolved]
  - Rash papular [Recovered/Resolved]
  - Myalgia [Recovering/Resolving]
  - Muscular weakness [Unknown]
